FAERS Safety Report 9270052 (Version 1)
Quarter: 2013Q2

REPORT INFORMATION
  Report Type: Spontaneous
  Country: US (occurrence: US)
  Receive Date: 20130503
  Receipt Date: 20130503
  Transmission Date: 20140414
  Serious: Yes (Other)
  Sender: FDA-Public Use
  Company Number: US-PFIZER INC-2013135105

PATIENT
  Age: 58 Year
  Sex: Male

DRUGS (1)
  1. REVATIO [Suspect]
     Indication: PULMONARY HYPERTENSION
     Dosage: 40 MG (TAKING TWO TABLETS OF 20MG), 3X/DAY
     Route: 048
     Dates: start: 2009

REACTIONS (1)
  - Liver disorder [Unknown]
